FAERS Safety Report 8954255 (Version 3)
Quarter: 2013Q3

REPORT INFORMATION
  Report Type: Report from Study
  Country: US (occurrence: US)
  Receive Date: 20121207
  Receipt Date: 20130917
  Transmission Date: 20140515
  Serious: Yes (Other)
  Sender: FDA-Public Use
  Company Number: PHEH2012US024034

PATIENT
  Age: 28 Year
  Sex: Female
  Weight: 104.31 kg

DRUGS (5)
  1. GILENYA [Suspect]
     Indication: MULTIPLE SCLEROSIS
     Dosage: 0.5 MG, QD
     Route: 048
     Dates: start: 20120627
  2. TOPAMAX [Concomitant]
     Indication: MIGRAINE
     Dosage: 50 MG, BID
     Route: 048
     Dates: start: 201303
  3. AMITRIPTYLINE [Concomitant]
  4. CITALOPRAM [Concomitant]
  5. MAXALT [Concomitant]

REACTIONS (6)
  - Loss of consciousness [Not Recovered/Not Resolved]
  - Visual impairment [Not Recovered/Not Resolved]
  - Hypertension [Recovered/Resolved]
  - Fatigue [Unknown]
  - Alopecia [Not Recovered/Not Resolved]
  - Multiple sclerosis relapse [Unknown]
